FAERS Safety Report 12818678 (Version 1)
Quarter: 2016Q4

REPORT INFORMATION
  Report Type: Report from Study
  Country: US (occurrence: US)
  Receive Date: 20161006
  Receipt Date: 20161006
  Transmission Date: 20170207
  Serious: Yes (Death)
  Sender: FDA-Public Use
  Company Number: PHHY2015US130758

PATIENT
  Age: 79 Year
  Sex: Male

DRUGS (2)
  1. VOTRIENT [Suspect]
     Active Substance: PAZOPANIB HYDROCHLORIDE
     Indication: RENAL CELL CARCINOMA
     Dosage: 200 MG, U
     Route: 065
     Dates: start: 20150403
  2. VOTRIENT [Suspect]
     Active Substance: PAZOPANIB HYDROCHLORIDE
     Dosage: 200 MG, QD
     Route: 065
     Dates: start: 20160505, end: 20160909

REACTIONS (7)
  - Pain in extremity [Unknown]
  - Abdominal pain [Unknown]
  - Erythema [Unknown]
  - Weight decreased [Unknown]
  - Death [Fatal]
  - Epistaxis [Unknown]
  - Diarrhoea [Unknown]

NARRATIVE: CASE EVENT DATE: 20160914
